FAERS Safety Report 21607939 (Version 3)
Quarter: 2022Q4

REPORT INFORMATION
  Report Type: Spontaneous
  Country: US (occurrence: US)
  Receive Date: 20221117
  Receipt Date: 20221130
  Transmission Date: 20230113
  Serious: Yes (Other)
  Sender: FDA-Public Use
  Company Number: US-GSK-US2022AMR164751

PATIENT

DRUGS (4)
  1. FLOLAN [Suspect]
     Active Substance: EPOPROSTENOL SODIUM
     Indication: Pulmonary arterial hypertension
     Dosage: FLOLAN DOSE AT TIME OF AE/PC: 44.6 NG/KG/MIN
     Dates: start: 20041008
  2. FLOLAN [Suspect]
     Active Substance: EPOPROSTENOL SODIUM
     Indication: Pulmonary arterial hypertension
     Dosage: 44.6 DF, CO, FLOLAN DOSE AT TIME OF AE/PC: 44.6 NG/KG/MIN
     Dates: start: 20041008
  3. GLYCINE\MANNITOL\SODIUM CHLORIDE [Suspect]
     Active Substance: GLYCINE\MANNITOL\SODIUM CHLORIDE
     Indication: Product used for unknown indication
     Dosage: UNK
     Dates: start: 20161010
  4. COUMADIN [Concomitant]
     Active Substance: WARFARIN SODIUM
     Indication: Product used for unknown indication
     Dosage: UNK

REACTIONS (4)
  - Hepatic cancer [Unknown]
  - Abdominal pain upper [Unknown]
  - Malaise [Unknown]
  - Feeling abnormal [Unknown]
